FAERS Safety Report 7669086-5 (Version None)
Quarter: 2011Q3

REPORT INFORMATION
  Report Type: 
  Country: None (occurrence: None)
  Receive Date: 20110808
  Receipt Date: 20110726
  Transmission Date: 20111222
  Serious: Yes (Other)
  Sender: FDA-Public Use
  Company Number: US-UCBSA-036962

PATIENT
  Sex: Male
  Weight: 89.81 kg

DRUGS (1)
  1. KEPPRA XR [Suspect]
     Indication: PARTIAL SEIZURES
     Dosage: STRENGTH: 750 MG
     Dates: start: 20070809, end: 20110726

REACTIONS (1)
  - SHOULDER OPERATION [None]
